FAERS Safety Report 23142627 (Version 1)
Quarter: 2023Q4

REPORT INFORMATION
  Report Type: Spontaneous
  Country: GB (occurrence: GB)
  Receive Date: 20231103
  Receipt Date: 20231103
  Transmission Date: 20240109
  Serious: Yes (Hospitalization)
  Sender: FDA-Public Use
  Company Number: None

PATIENT
  Age: 75 Year

DRUGS (14)
  1. APIXABAN [Suspect]
     Active Substance: APIXABAN
     Indication: Product used for unknown indication
  2. SPIRONOLACTONE [Concomitant]
     Active Substance: SPIRONOLACTONE
  3. LANSOPRAZOLE [Concomitant]
     Active Substance: LANSOPRAZOLE
  4. FUROSEMIDE [Concomitant]
     Active Substance: FUROSEMIDE
     Dosage: MORNING AND EVENING
  5. DOCUSATE [Concomitant]
     Active Substance: DOCUSATE
     Dosage: 1 -2 CAPS TWICE A DAY PRN
  6. MEBEVERINE [Concomitant]
     Active Substance: MEBEVERINE
     Dosage: TWENTY MINUTES BEFORE FOOD
  7. HYDROXOCOBALAMIN [Concomitant]
     Active Substance: HYDROXOCOBALAMIN
     Dosage: 1MG/1ML
  8. NITROGLYCERIN [Concomitant]
     Active Substance: NITROGLYCERIN
     Dosage: 400MICROGRAMS/DOSE PUMP, ONE OR TWO DOSES AS DIECTED
     Route: 060
  9. AMLODIPINE [Concomitant]
     Active Substance: AMLODIPINE BESYLATE
  10. FOLIC ACID [Concomitant]
     Active Substance: FOLIC ACID
  11. ATORVASTATIN [Concomitant]
     Active Substance: ATORVASTATIN
  12. RAMIPRIL [Concomitant]
     Active Substance: RAMIPRIL
  13. BISOPROLOL [Concomitant]
     Active Substance: BISOPROLOL\BISOPROLOL FUMARATE
     Dosage: EACH MORNING
  14. QUININE SULFATE [Concomitant]
     Active Substance: QUININE SULFATE
     Dosage: AT NIGHT

REACTIONS (1)
  - Haematuria [Unknown]
